FAERS Safety Report 5636328-7 (Version None)
Quarter: 2008Q1

REPORT INFORMATION
  Report Type: 
  Country: None (occurrence: None)
  Receive Date: 20080225
  Receipt Date: 20080211
  Transmission Date: 20080703
  Serious: Yes (Other)
  Sender: FDA-Public Use
  Company Number: SE-TYCO HEALTHCARE/MALLINCKRODT-T200800167

PATIENT

DRUGS (1)
  1. SODIUM IODIDE I 131 [Suspect]
     Indication: BASEDOW'S DISEASE
     Dosage: 500 MBQ, UNK
     Route: 064

REACTIONS (2)
  - CONGENITAL HYPOTHYROIDISM [None]
  - RADIATION EXPOSURE [None]
